FAERS Safety Report 13681811 (Version 1)
Quarter: 2017Q2

REPORT INFORMATION
  Report Type: Spontaneous
  Country: None (occurrence: US)
  Receive Date: 20170619
  Receipt Date: 20170619
  Transmission Date: 20170830
  Serious: Yes (Other)
  Sender: FDA-Public Use
  Company Number: None

PATIENT
  Age: 54 Year
  Sex: Female
  Weight: 81.72 kg

DRUGS (9)
  1. BABY ASPIRIN [Concomitant]
     Active Substance: ASPIRIN
  2. FISH OIL [Concomitant]
     Active Substance: FISH OIL
  3. METAFORMIN [Concomitant]
  4. ARMOUR THYROID [Concomitant]
     Active Substance: THYROID, PORCINE
  5. MULTI VIT [Concomitant]
  6. FIBER CAPS [Concomitant]
     Active Substance: CALCIUM POLYCARBOPHIL
  7. VICTOZA [Suspect]
     Active Substance: LIRAGLUTIDE
  8. COLACE [Concomitant]
     Active Substance: DOCUSATE SODIUM
  9. CINNAMON. [Concomitant]
     Active Substance: CINNAMON

REACTIONS (2)
  - Muscle spasms [None]
  - Sleep disorder [None]

NARRATIVE: CASE EVENT DATE: 20170619
